FAERS Safety Report 16567824 (Version 2)
Quarter: 2019Q3

REPORT INFORMATION
  Report Type: Spontaneous
  Country: US (occurrence: US)
  Receive Date: 20190712
  Receipt Date: 20190925
  Transmission Date: 20191004
  Serious: Yes (Congenital Anomaly, Other)
  Sender: FDA-Public Use
  Company Number: US-GLAXOSMITHKLINE-A0700778A

PATIENT
  Age: 0 Day
  Sex: Female

DRUGS (5)
  1. LAMOTRIGINE. [Suspect]
     Active Substance: LAMOTRIGINE
     Indication: EPILEPSY
     Dosage: 200 MG, UNK
     Route: 064
  2. LAMICTAL [Suspect]
     Active Substance: LAMOTRIGINE
     Indication: EPILEPSY
     Dosage: 400 MG, 1D
     Route: 064
  3. PRENATAL VITAMIN [Concomitant]
     Active Substance: VITAMINS
     Dosage: UNK
     Route: 064
  4. LAMICTAL [Suspect]
     Active Substance: LAMOTRIGINE
     Dosage: 200 MG, UNK
     Route: 064
  5. LAMICTAL [Suspect]
     Active Substance: LAMOTRIGINE
     Dosage: 25 MG, UNK
     Route: 064

REACTIONS (15)
  - Rash [Unknown]
  - Eustachian tube dysfunction [Unknown]
  - Rhinoplasty [Unknown]
  - Cleft palate [Unknown]
  - Eye disorder [Unknown]
  - Foetal exposure during pregnancy [Unknown]
  - Flushing [Unknown]
  - Cleft lip repair [Unknown]
  - Palatoplasty [Unknown]
  - Ear tube insertion [Unknown]
  - Cleft lip [Unknown]
  - Nose deformity [Unknown]
  - Eustachian tube disorder [Unknown]
  - Conjunctivitis [Unknown]
  - Deafness [Unknown]

NARRATIVE: CASE EVENT DATE: 20070928
